FAERS Safety Report 16908301 (Version 1)
Quarter: 2019Q4

REPORT INFORMATION
  Report Type: Spontaneous
  Country: US (occurrence: US)
  Receive Date: 20191011
  Receipt Date: 20191011
  Transmission Date: 20200122
  Serious: No
  Sender: FDA-Public Use
  Company Number: US-GLAXOSMITHKLINE-US2019180595

PATIENT
  Age: 13 Year
  Sex: Male

DRUGS (2)
  1. LAMISIL AT CONTINUOUS SPRAY [Suspect]
     Active Substance: TERBINAFINE HYDROCHLORIDE
     Dosage: SPRAY 3 OTHER TIMES
     Dates: start: 201909, end: 201909
  2. LAMISIL AT CONTINUOUS SPRAY [Suspect]
     Active Substance: TERBINAFINE HYDROCHLORIDE
     Indication: TINEA PEDIS
     Dosage: SPRAY 3 OTHER TIMES
     Dates: start: 201909, end: 201909

REACTIONS (2)
  - Drug ineffective [Unknown]
  - Expired product administered [Unknown]
